FAERS Safety Report 6328760-3 (Version None)
Quarter: 2009Q3

REPORT INFORMATION
  Report Type: 
  Country: None (occurrence: None)
  Receive Date: 20090826
  Receipt Date: 20090825
  Transmission Date: 20100115
  Serious: No
  Sender: FDA-Public Use
  Company Number: US-B.I. PHARMACEUTICALS,INC./RIDGEFIELD-2009-BP-09483BP

PATIENT
  Sex: Female

DRUGS (3)
  1. COMBIVENT [Suspect]
     Indication: DYSPNOEA
     Dosage: 2 PUF
     Route: 055
     Dates: start: 20030101, end: 20090701
  2. MULTIVITAMIN [Concomitant]
     Indication: EYE DISORDER
  3. CENTRUM SILVER [Concomitant]
     Indication: EYE DISORDER

REACTIONS (3)
  - BLOOD CHOLESTEROL INCREASED [None]
  - DYSPNOEA [None]
  - RHINORRHOEA [None]
